FAERS Safety Report 6840900-6 (Version None)
Quarter: 2010Q3

REPORT INFORMATION
  Report Type: 
  Country: None (occurrence: None)
  Receive Date: 20100714
  Receipt Date: 20070616
  Transmission Date: 20110219
  Serious: No
  Sender: FDA-Public Use
  Company Number: US-PFIZER INC-2007051365

PATIENT
  Sex: Female

DRUGS (3)
  1. CHANTIX [Suspect]
     Indication: SMOKING CESSATION THERAPY
     Dates: start: 20070616
  2. ALPRAZOLAM [Concomitant]
  3. ALEVE (CAPLET) [Concomitant]
     Indication: HEADACHE

REACTIONS (8)
  - CHEST PAIN [None]
  - ENERGY INCREASED [None]
  - HEADACHE [None]
  - MALAISE [None]
  - MIGRAINE [None]
  - NAUSEA [None]
  - NERVOUSNESS [None]
  - PAIN IN EXTREMITY [None]
